FAERS Safety Report 10072330 (Version 2)
Quarter: 2014Q2

REPORT INFORMATION
  Report Type: Spontaneous
  Country: IT (occurrence: IT)
  Receive Date: 20140411
  Receipt Date: 20140616
  Transmission Date: 20141212
  Serious: Yes (Other)
  Sender: FDA-Public Use
  Company Number: IT-BRISTOL-MYERS SQUIBB COMPANY-20600656

PATIENT
  Age: 34 Year
  Sex: Male

DRUGS (1)
  1. COUMADIN TABS 5 MG [Suspect]
     Dosage: 26 UNIT
     Route: 048
     Dates: start: 20140327

REACTIONS (2)
  - Intentional self-injury [Recovered/Resolved]
  - International normalised ratio increased [Recovered/Resolved]
